FAERS Safety Report 4551081-6 (Version None)
Quarter: 2005Q1

REPORT INFORMATION
  Report Type: 
  Country: None (occurrence: None)
  Receive Date: 20050113
  Receipt Date: 20040805
  Transmission Date: 20050727
  Serious: Yes (Hospitalization, Other)
  Sender: FDA-Public Use
  Company Number: US-BRISTOL-MYERS SQUIBB COMPANY-12663068

PATIENT
  Age: 51 Year
  Sex: Female
  Weight: 98 kg

DRUGS (6)
  1. IFEX [Suspect]
     Indication: LEIOMYOSARCOMA
     Dosage: 02-AUG-2004: 4 G IN 3L NSS  03-05-AUG-04: 4 G IN 500 CC
     Route: 042
     Dates: start: 20040802, end: 20040805
  2. DECADRON [Concomitant]
     Indication: PREMEDICATION
     Route: 042
     Dates: start: 20040802, end: 20040802
  3. KYTRIL [Concomitant]
     Indication: PREMEDICATION
     Route: 042
     Dates: start: 20040808, end: 20040805
  4. MESNA [Concomitant]
  5. GRANISETRON [Concomitant]
     Route: 042
  6. DEXAMETHASONE [Concomitant]
     Route: 042

REACTIONS (2)
  - BLOOD PRESSURE SYSTOLIC INCREASED [None]
  - NEUROTOXICITY [None]
